FAERS Safety Report 8379615-4 (Version None)
Quarter: 2012Q2

REPORT INFORMATION
  Report Type: 
  Country: None (occurrence: None)
  Receive Date: 20120523
  Receipt Date: 20120516
  Transmission Date: 20120825
  Serious: Yes (Hospitalization)
  Sender: FDA-Public Use
  Company Number: PHNU2006AU00836

PATIENT
  Sex: Male

DRUGS (8)
  1. CLOZARIL [Suspect]
     Dosage: 300 MG, DAILY
     Dates: start: 19981028
  2. CLOZARIL [Suspect]
     Dosage: 300 MG, DAILY
     Dates: start: 20030121
  3. CLOZARIL [Suspect]
     Dosage: 400 MG, DAILY
     Dates: start: 19981214
  4. CLOZARIL [Suspect]
     Dosage: 600 MG, DAILY
     Dates: start: 19991025
  5. CLOZARIL [Suspect]
     Dosage: 400 MG
     Route: 048
     Dates: start: 19981007
  6. CLOZARIL [Suspect]
     Dosage: 200 MG, DAILY
     Dates: start: 19981014
  7. CLOZARIL [Suspect]
     Dosage: 400 MG, DAILY
     Dates: start: 19981021
  8. CLOZARIL [Suspect]
     Dosage: 100 MG, DAILY
     Dates: start: 19981130

REACTIONS (7)
  - WEIGHT DECREASED [None]
  - OBSESSIVE-COMPULSIVE DISORDER [None]
  - HALLUCINATION [None]
  - GENERAL PHYSICAL HEALTH DETERIORATION [None]
  - DEPRESSIVE SYMPTOM [None]
  - DRUG INEFFECTIVE [None]
  - MENTAL IMPAIRMENT [None]
